FAERS Safety Report 9496796 (Version 1)
Quarter: 2013Q3

REPORT INFORMATION
  Report Type: Spontaneous
  Country: US (occurrence: None)
  Receive Date: 20130903
  Receipt Date: 20130903
  Transmission Date: 20140515
  Serious: Yes (Hospitalization)
  Sender: FDA-Public Use
  Company Number: None

PATIENT
  Age: 66 Year
  Sex: Male
  Weight: 83.92 kg

DRUGS (1)
  1. TERBINAFINE HCL 250 MG [Suspect]
     Indication: ONYCHOMYCOSIS
     Dosage: 1 PILL ONCE DAILY TAKEN BY MOUTH
     Route: 048
     Dates: start: 20130525, end: 20130613

REACTIONS (3)
  - Haemorrhage [None]
  - Loss of consciousness [None]
  - Diverticulitis [None]
